FAERS Safety Report 18455566 (Version 1)
Quarter: 2020Q4

REPORT INFORMATION
  Report Type: Spontaneous
  Country: US (occurrence: US)
  Receive Date: 20201103
  Receipt Date: 20201103
  Transmission Date: 20210114
  Serious: Yes (Hospitalization, Other)
  Sender: FDA-Public Use
  Company Number: US-CIPLA LTD.-2020NL07701

PATIENT

DRUGS (4)
  1. SALBUTAMOL [Suspect]
     Active Substance: ALBUTEROL
     Dosage: UNK, NEBULIZER, LEAKING OF THE NEBULIZED MEDICATIONS INTO EYE
     Route: 047
  2. IPRATROPIUM [Suspect]
     Active Substance: IPRATROPIUM
     Indication: CHRONIC OBSTRUCTIVE PULMONARY DISEASE
     Dosage: UNK, NEBULIZER
     Route: 055
  3. SALBUTAMOL [Suspect]
     Active Substance: ALBUTEROL
     Indication: CHRONIC OBSTRUCTIVE PULMONARY DISEASE
     Dosage: UNK, NEBULIZER
     Route: 055
  4. IPRATROPIUM [Suspect]
     Active Substance: IPRATROPIUM
     Dosage: UNK, NEBULIZER, LEAKING OF THE NEBULIZED MEDICATIONS INTO EYE
     Route: 047

REACTIONS (2)
  - Pupils unequal [Recovered/Resolved]
  - Accidental exposure to product [Recovered/Resolved]
